FAERS Safety Report 6921319-6 (Version None)
Quarter: 2010Q3

REPORT INFORMATION
  Report Type: 
  Country: None (occurrence: None)
  Receive Date: 20100812
  Receipt Date: 20100805
  Transmission Date: 20110219
  Serious: Yes (Hospitalization)
  Sender: FDA-Public Use
  Company Number: B0669593A

PATIENT
  Sex: Female

DRUGS (8)
  1. LANOXIN [Suspect]
     Indication: ATRIAL FIBRILLATION
     Dosage: .125MG PER DAY
     Route: 048
     Dates: start: 20070101, end: 20100803
  2. BISOPROLOL FUMARATE [Suspect]
     Indication: ATRIAL FIBRILLATION
     Dosage: 2.5MG PER DAY
     Route: 048
     Dates: start: 20070101, end: 20100803
  3. LASITONE [Suspect]
     Indication: HYPERTENSION
     Route: 048
     Dates: start: 20060101, end: 20100803
  4. COUMADIN [Concomitant]
     Dosage: 5MG PER DAY
     Dates: start: 20070101
  5. ANTRA [Concomitant]
     Dosage: 40MG PER DAY
  6. LASIX [Concomitant]
     Dosage: 60MG PER DAY
  7. FOLIC ACID [Concomitant]
     Dosage: 400MCG PER DAY
  8. LOSAPREX [Concomitant]
     Dosage: 50MG PER DAY

REACTIONS (10)
  - ASTHENIA [None]
  - BLOOD CREATINE INCREASED [None]
  - BLOOD PRESSURE DIASTOLIC DECREASED [None]
  - BRADYCARDIA [None]
  - CHEST PAIN [None]
  - DYSPHAGIA [None]
  - HEART RATE DECREASED [None]
  - NAUSEA [None]
  - THERAPEUTIC AGENT TOXICITY [None]
  - VOMITING [None]
